FAERS Safety Report 4696075-5 (Version None)
Quarter: 2005Q2

REPORT INFORMATION
  Report Type: 
  Country: None (occurrence: None)
  Receive Date: 20050617
  Receipt Date: 20050602
  Transmission Date: 20051028
  Serious: Yes (Death)
  Sender: FDA-Public Use
  Company Number: 2005S1004929

PATIENT
  Sex: Male

DRUGS (11)
  1. COVERSYL (PERINDOPRIL) [Suspect]
     Indication: ILL-DEFINED DISORDER
     Dosage: 4 MG; QD; PO
     Route: 048
  2. SPIRIVA [Suspect]
     Indication: ILL-DEFINED DISORDER
     Dosage: QD; INH
     Route: 055
  3. ALLOPURINOL TAB [Suspect]
     Dosage: 200 MG;QD; PO
     Route: 048
  4. DIGOXIN [Suspect]
     Dosage: 250 MCG; QD; PO
     Route: 048
  5. FUROSEMIDE [Suspect]
     Dosage: 80 MG;QD; PO
     Route: 048
  6. PANTOPRAZOLE [Suspect]
     Dosage: 20 MG;QD; PO
     Route: 048
  7. SIMVASTATIN [Suspect]
     Dosage: 40 MG; QD ; PO
     Route: 048
  8. BECLOMETHASONE DIPROPIONATE [Suspect]
     Dosage: QD; INH
     Route: 055
  9. VENTOLIN [Suspect]
  10. PARACETAMOL [Suspect]
  11. WARFARIN [Suspect]

REACTIONS (1)
  - AORTIC DISSECTION [None]
